FAERS Safety Report 25004440 (Version 1)
Quarter: 2025Q1

REPORT INFORMATION
  Report Type: Spontaneous
  Country: US (occurrence: US)
  Receive Date: 20250224
  Receipt Date: 20250224
  Transmission Date: 20250409
  Serious: No
  Sender: DR REDDYS
  Company Number: US-DRL-USA-USA/2025/02/002463

PATIENT
  Age: 35 Year
  Sex: Male

DRUGS (2)
  1. MERCAPTOPURINE [Suspect]
     Active Substance: MERCAPTOPURINE
     Indication: Erdheim-Chester disease
     Route: 048
  2. METHOTREXATE [Suspect]
     Active Substance: METHOTREXATE
     Indication: Erdheim-Chester disease
     Route: 048

REACTIONS (2)
  - Adverse drug reaction [Unknown]
  - Product use in unapproved indication [Unknown]
